FAERS Safety Report 8074049-4 (Version None)
Quarter: 2011Q4

REPORT INFORMATION
  Report Type: 
  Country: None (occurrence: None)
  Receive Date: 20111221
  Receipt Date: 20110412
  Transmission Date: 20120403
  Serious: Yes (Other)
  Sender: FDA-Public Use
  Company Number: PHHY2009US66759

PATIENT
  Age: 32 Year
  Sex: Female
  Weight: 45 kg

DRUGS (1)
  1. EXJADE [Suspect]
     Indication: SICKLE CELL ANAEMIA
     Dosage: 500 MG, 1000-1500 MG DAILY, ORAL
     Route: 048
     Dates: start: 20090813

REACTIONS (6)
  - ABDOMINAL PAIN [None]
  - HAEMATEMESIS [None]
  - EPISTAXIS [None]
  - DRUG INTOLERANCE [None]
  - NAUSEA [None]
  - VOMITING [None]
